FAERS Safety Report 7906173-8 (Version None)
Quarter: 2011Q4

REPORT INFORMATION
  Report Type: 
  Country: None (occurrence: None)
  Receive Date: 20111109
  Receipt Date: 20111109
  Transmission Date: 20120403
  Serious: Yes (Death)
  Sender: FDA-Public Use
  Company Number: None

PATIENT

DRUGS (1)
  1. VICODIN [Suspect]
     Indication: PROCEDURAL PAIN
     Dosage: 500 MG EVERY 4-6 HR. MOUTH
     Route: 048
     Dates: start: 20100305

REACTIONS (1)
  - DEATH [None]
